FAERS Safety Report 20140765 (Version 1)
Quarter: 2021Q4

REPORT INFORMATION
  Report Type: Spontaneous
  Country: BR (occurrence: BR)
  Receive Date: 20211202
  Receipt Date: 20211202
  Transmission Date: 20220303
  Serious: Yes (Other)
  Sender: FDA-Public Use
  Company Number: BR-NOVARTISPH-NVSC2020BR250426

PATIENT
  Sex: Female

DRUGS (2)
  1. TIMOLOL\TRAVOPROST [Suspect]
     Active Substance: TIMOLOL\TRAVOPROST
     Indication: Glaucoma
     Dosage: (ABOUL 20 YEARS AGO)
     Route: 065
  2. TIMOLOL MALEATE [Concomitant]
     Active Substance: TIMOLOL MALEATE
     Indication: Product used for unknown indication
     Dosage: UNK
     Route: 065

REACTIONS (5)
  - Cerebrovascular accident [Unknown]
  - Diabetes mellitus [Unknown]
  - Product dose omission issue [Not Recovered/Not Resolved]
  - Hypertension [Unknown]
  - Product availability issue [Unknown]
